FAERS Safety Report 11315726 (Version 1)
Quarter: 2015Q3

REPORT INFORMATION
  Report Type: Spontaneous
  Country: US (occurrence: US)
  Receive Date: 20150728
  Receipt Date: 20150728
  Transmission Date: 20151125
  Serious: Yes (Hospitalization, Other)
  Sender: FDA-Public Use
  Company Number: US-DRREDDYS-USA/USA/15/0049567

PATIENT
  Age: 68 Year
  Sex: Male

DRUGS (6)
  1. NITROGLYCERIN. [Concomitant]
     Active Substance: NITROGLYCERIN
     Indication: DYSPNOEA
  2. CLOPIDOGREL BISULFATE. [Suspect]
     Active Substance: CLOPIDOGREL BISULFATE
     Indication: CORONARY ARTERY DISEASE
     Route: 065
  3. HEPARIN [Concomitant]
     Active Substance: HEPARIN SODIUM
     Indication: CHEST DISCOMFORT
     Route: 042
  4. HEPARIN [Concomitant]
     Active Substance: HEPARIN SODIUM
     Indication: DYSPNOEA
  5. TRIMETHOPRIM-SULFAMETHOXAZOLE [Suspect]
     Active Substance: SULFAMETHOXAZOLE\TRIMETHOPRIM
     Indication: CELLULITIS
     Route: 065
  6. NITROGLYCERIN. [Concomitant]
     Active Substance: NITROGLYCERIN
     Indication: CHEST DISCOMFORT
     Route: 060

REACTIONS (17)
  - Dyspnoea [Recovered/Resolved]
  - Petechiae [Recovered/Resolved]
  - Epistaxis [Recovered/Resolved]
  - Transient ischaemic attack [Recovered/Resolved]
  - Rash macular [Not Recovered/Not Resolved]
  - Post procedural discharge [Recovered/Resolved]
  - Quadranopia [Recovered/Resolved]
  - Atrial fibrillation [Recovered/Resolved]
  - Chills [Recovered/Resolved]
  - Incision site oedema [Recovered/Resolved]
  - Immune thrombocytopenic purpura [Recovered/Resolved]
  - Azotaemia [Recovered/Resolved]
  - International normalised ratio increased [Recovered/Resolved]
  - Pleural effusion [Recovered/Resolved]
  - Hyperkalaemia [Recovered/Resolved]
  - Pericardial effusion [Recovered/Resolved]
  - Incision site erythema [Recovered/Resolved]
